FAERS Safety Report 20373581 (Version 3)
Quarter: 2022Q2

REPORT INFORMATION
  Report Type: Report from Study
  Country: US (occurrence: US)
  Receive Date: 20220125
  Receipt Date: 20220418
  Transmission Date: 20220721
  Serious: Yes (Other)
  Sender: FDA-Public Use
  Company Number: US-NOVARTISTESTPH-NVSC2022US013357

PATIENT
  Sex: Female

DRUGS (1)
  1. PROMACTA [Suspect]
     Active Substance: ELTROMBOPAG OLAMINE
     Indication: Product used for unknown indication
     Dosage: UNK
     Route: 048

REACTIONS (8)
  - Cerebrovascular accident [Unknown]
  - Stevens-Johnson syndrome [Unknown]
  - Insomnia [Unknown]
  - Myalgia [Unknown]
  - Skin burning sensation [Unknown]
  - Rash [Unknown]
  - Nasal septum perforation [Unknown]
  - Platelet count increased [Unknown]
